FAERS Safety Report 6857332-7 (Version None)
Quarter: 2010Q3

REPORT INFORMATION
  Report Type: 
  Country: None (occurrence: None)
  Receive Date: 20100719
  Receipt Date: 20100705
  Transmission Date: 20110219
  Serious: Yes (Hospitalization, Other)
  Sender: FDA-Public Use
  Company Number: FR-ELI_LILLY_AND_COMPANY-FR201007000693

PATIENT
  Sex: Female

DRUGS (6)
  1. PROZAC [Suspect]
     Indication: DEPRESSION
     Route: 048
     Dates: start: 20100406, end: 20100416
  2. LEVOTHYROXINE SODIUM [Concomitant]
     Dosage: 125 MG, DAILY (1/D)
  3. CYMBALTA [Concomitant]
     Dosage: 60 MG, DAILY (1/D)
     Route: 048
     Dates: start: 20100506, end: 20100510
  4. ALDACTAZINE [Concomitant]
     Indication: OEDEMA PERIPHERAL
     Dosage: 50 MG, UNK
     Route: 048
     Dates: start: 20100416
  5. ESCITALOPRAM OXALATE [Concomitant]
     Indication: DEPRESSION
     Dosage: 20 MG, DAILY (1/D)
     Route: 048
     Dates: start: 20100416, end: 20100506
  6. NORSET [Concomitant]
     Indication: DEPRESSION
     Dosage: 15 MG, DAILY (1/D)
     Route: 048
     Dates: start: 20100426, end: 20100503

REACTIONS (5)
  - BLOOD OSMOLARITY DECREASED [None]
  - DIZZINESS [None]
  - HYPOKALAEMIA [None]
  - HYPONATRAEMIA [None]
  - INAPPROPRIATE ANTIDIURETIC HORMONE SECRETION [None]
